FAERS Safety Report 21312688 (Version 1)
Quarter: 2022Q3

REPORT INFORMATION
  Report Type: Spontaneous
  Country: US (occurrence: None)
  Receive Date: 20220908
  Receipt Date: 20220908
  Transmission Date: 20221027
  Serious: Yes (unspecified)
  Sender: FDA-Public Use
  Company Number: None

PATIENT
  Age: 83 Year
  Sex: Male
  Weight: 78.47 kg

DRUGS (2)
  1. XTANDI [Suspect]
     Active Substance: ENZALUTAMIDE
     Indication: Prostate cancer
     Dosage: FREQUENCY : DAILY;?
     Route: 048
     Dates: start: 20220603
  2. LUPRON [Suspect]
     Active Substance: LEUPROLIDE ACETATE

REACTIONS (4)
  - COVID-19 [None]
  - Therapy interrupted [None]
  - Night sweats [None]
  - Condition aggravated [None]

NARRATIVE: CASE EVENT DATE: 20220715
